FAERS Safety Report 5406911-2 (Version None)
Quarter: 2007Q3

REPORT INFORMATION
  Report Type: 
  Country: None (occurrence: None)
  Receive Date: 20070802
  Receipt Date: 20070723
  Transmission Date: 20080115
  Serious: Yes (Other)
  Sender: FDA-Public Use
  Company Number: B0481340A

PATIENT
  Age: 5 Year
  Sex: Female

DRUGS (1)
  1. LAMOTRIGINE [Suspect]
     Indication: EPILEPSY
     Dosage: 250 MG/TWICE PER DAY/ORAL
     Route: 048

REACTIONS (8)
  - CONDITION AGGRAVATED [None]
  - CONFUSIONAL STATE [None]
  - CONVULSION [None]
  - COORDINATION ABNORMAL [None]
  - DRUG TOXICITY [None]
  - OVERDOSE [None]
  - SOMNOLENCE [None]
  - VOMITING [None]
